FAERS Safety Report 7763387-8 (Version None)
Quarter: 2011Q3

REPORT INFORMATION
  Report Type: 
  Country: None (occurrence: None)
  Receive Date: 20110920
  Receipt Date: 20110913
  Transmission Date: 20111222
  Serious: Yes (Death)
  Sender: FDA-Public Use
  Company Number: JP-GENZYME-FLUD-1001355

PATIENT
  Sex: Male

DRUGS (14)
  1. TACROLIMUS [Concomitant]
     Indication: PROPHYLAXIS AGAINST GRAFT VERSUS HOST DISEASE
     Dosage: 0.02 MG/KG/QD,CONTINUOUS INFUSION; TARGET BLOOD LEVEL 8-10 NG/ML UNTIL DAY 30; TAPERED UNTIL ABSENCE
     Route: 041
  2. AMPHOTERICIN B [Concomitant]
     Indication: ANTIBIOTIC PROPHYLAXIS
     Dosage: UNK
     Route: 048
  3. COTRIM [Concomitant]
     Indication: ANTIFUNGAL PROPHYLAXIS
     Dosage: UNK, FOR AT LEAST A YEAR
     Route: 065
  4. ACYCLOVIR [Concomitant]
     Indication: ANTIVIRAL PROPHYLAXIS
     Dosage: 1000 MG, QD FOR 5 WEEKS AFTER TRANSPLANTATION
     Route: 065
  5. ATG FRESENIUS [Suspect]
     Indication: MYELODYSPLASTIC SYNDROME
  6. FLUDARA [Suspect]
     Indication: MYELODYSPLASTIC SYNDROME
  7. ATG FRESENIUS [Suspect]
     Indication: STEM CELL TRANSPLANT
     Dosage: 2 MG/KG, QD, DAY -4 TO -1
     Route: 065
  8. METHYLPREDNISOLONE [Concomitant]
     Indication: PROPHYLAXIS AGAINST GRAFT VERSUS HOST DISEASE
     Dosage: 1 MG/KG/QD,FROM DAY -4 TAPERING 3RD WEEK UNTIL DAY 30 USING SERUM INTERLEUKIN-2 RECEPTOR LEVEL
     Route: 042
  9. VANCOMYCIN [Concomitant]
     Indication: ANTIBIOTIC PROPHYLAXIS
     Dosage: UNK
     Route: 048
  10. IMMUNE GLOBULIN NOS [Concomitant]
     Indication: PRODUCT USED FOR UNKNOWN INDICATION
     Dosage: UNK,MINIMUM DOSE OF 100 MG/KG, Q2W UNTIL DAY 100
     Route: 042
  11. TACROLIMUS [Concomitant]
     Dosage: UNK BEFORE TRANSPLANTATION
     Route: 065
  12. FLUDARA [Suspect]
     Indication: STEM CELL TRANSPLANT
     Dosage: 30 MG/M2, QDX3, DAYS -6 TO -4
     Route: 042
  13. CIPROFLOXACIN [Concomitant]
     Indication: ANTIBIOTIC PROPHYLAXIS
     Dosage: UNK
     Route: 048
  14. GANCICLOVIR [Concomitant]
     Indication: ANTIVIRAL PROPHYLAXIS
     Dosage: 2.5 MG/KG, TID DAY -10 TO DAY -3
     Route: 065

REACTIONS (2)
  - GRAFT VERSUS HOST DISEASE [None]
  - THROMBOTIC MICROANGIOPATHY [None]
